FAERS Safety Report 13151971 (Version 2)
Quarter: 2017Q1

REPORT INFORMATION
  Report Type: Report from Study
  Country: FR (occurrence: FR)
  Receive Date: 20170125
  Receipt Date: 20170131
  Transmission Date: 20170428
  Serious: Yes (Other)
  Sender: FDA-Public Use
  Company Number: FR-ROCHE-1882687

PATIENT
  Age: 65 Year
  Sex: Female
  Weight: 68 kg

DRUGS (12)
  1. ATEZOLIZUMAB [Suspect]
     Active Substance: ATEZOLIZUMAB
     Indication: NON-SMALL CELL LUNG CANCER STAGE IV
     Dosage: MOST RECENT DOSE: 06/JAN/2017 AT 15:50 (1200 MG).?FIXED DOSE AS PER PROTOCOL
     Route: 042
     Dates: start: 20161213
  2. NAB-PACLITAXEL [Suspect]
     Active Substance: PACLITAXEL
     Indication: NON-SMALL CELL LUNG CANCER STAGE IV
     Dosage: MOST RECENT DOSE: 12/JAN/2017 (180 MG).?STARTING DOSE AS PER PROTOCOL
     Route: 042
     Dates: start: 20161213
  3. IRBESARTAN. [Concomitant]
     Active Substance: IRBESARTAN
     Indication: HYPERTENSION
     Route: 065
     Dates: start: 20161019, end: 20170111
  4. CARBOPLATIN. [Suspect]
     Active Substance: CARBOPLATIN
     Indication: NON-SMALL CELL LUNG CANCER STAGE IV
     Dosage: MOST RECENT DOSE: 06/JAN/2017 AT 17:05 (580 MG).?INITIAL TARGET AREA UNDER THE CONCENTRATION-TIME CU
     Route: 042
     Dates: start: 20161213
  5. NEORECORMON [Concomitant]
     Active Substance: ERYTHROPOIETIN
     Indication: ANAEMIA
     Dosage: 30000
     Route: 065
     Dates: start: 20170125
  6. SEROPLEX [Concomitant]
     Active Substance: ESCITALOPRAM OXALATE
     Indication: ANXIETY
     Route: 065
     Dates: start: 201610
  7. BROMAZEPAM [Concomitant]
     Active Substance: BROMAZEPAM
     Indication: ANXIETY
     Route: 065
     Dates: start: 20161220
  8. OXYCONTIN [Concomitant]
     Active Substance: OXYCODONE HYDROCHLORIDE
     Indication: BACK PAIN
     Route: 065
     Dates: start: 20161123
  9. LYRICA [Concomitant]
     Active Substance: PREGABALIN
     Indication: ANXIETY
     Route: 065
     Dates: start: 201610
  10. INNOHEP [Concomitant]
     Active Substance: TINZAPARIN SODIUM
     Indication: THROMBOSIS PROPHYLAXIS
     Route: 065
     Dates: start: 201610
  11. VERAPAMIL [Concomitant]
     Active Substance: VERAPAMIL HYDROCHLORIDE
     Indication: HYPERTENSION
     Route: 065
     Dates: start: 20161019
  12. PYOSTACINE [Concomitant]
     Active Substance: PRISTINAMYCIN
     Indication: INFECTION PROPHYLAXIS
     Route: 065
     Dates: start: 20170120, end: 20170126

REACTIONS (1)
  - Neutrophil count decreased [Recovered/Resolved]

NARRATIVE: CASE EVENT DATE: 20170118
